FAERS Safety Report 6094656-8 (Version None)
Quarter: 2009Q1

REPORT INFORMATION
  Report Type: 
  Country: None (occurrence: None)
  Receive Date: 20090226
  Receipt Date: 20090213
  Transmission Date: 20090719
  Serious: Yes (Hospitalization, Other)
  Sender: FDA-Public Use
  Company Number: ES-GENENTECH-277441

PATIENT
  Sex: Female

DRUGS (3)
  1. AVASTIN [Suspect]
     Indication: BREAST CANCER
     Dosage: 830 MG/KG, Q3W
     Dates: start: 20080926
  2. PACLITAXEL [Suspect]
     Indication: BREAST CANCER
     Dosage: 170 MG, Q3W
     Route: 042
     Dates: start: 20080926, end: 20090101
  3. ZOMETA [Concomitant]
     Indication: DRUG USE FOR UNKNOWN INDICATION

REACTIONS (1)
  - RASH [None]
